FAERS Safety Report 5011707-X (Version None)
Quarter: 2006Q2

REPORT INFORMATION
  Report Type: 
  Country: None (occurrence: None)
  Receive Date: 20060524
  Receipt Date: 20060524
  Transmission Date: 20061013
  Serious: No
  Sender: FDA-Public Use
  Company Number: None

PATIENT
  Age: 70 Year
  Sex: Male
  Weight: 85 kg

DRUGS (1)
  1. AMIODARONE 400 NG [Suspect]
     Dosage: BID

REACTIONS (1)
  - ATRIOVENTRICULAR BLOCK COMPLETE [None]
